FAERS Safety Report 6335205-6 (Version None)
Quarter: 2009Q3

REPORT INFORMATION
  Report Type: 
  Country: None (occurrence: None)
  Receive Date: 20090831
  Receipt Date: 20090819
  Transmission Date: 20100115
  Serious: Yes (Other)
  Sender: FDA-Public Use
  Company Number: SG-PFIZER INC-2009257975

PATIENT
  Age: 26 Year

DRUGS (1)
  1. PHENYTOIN AND PHENYTOIN SODIUM [Suspect]
     Dosage: UNK

REACTIONS (5)
  - ALANINE AMINOTRANSFERASE INCREASED [None]
  - ASPARTATE AMINOTRANSFERASE INCREASED [None]
  - EOSINOPHILIA [None]
  - PYREXIA [None]
  - RASH MACULO-PAPULAR [None]
